FAERS Safety Report 10725250 (Version 1)
Quarter: 2015Q1

REPORT INFORMATION
  Report Type: Spontaneous
  Country: US (occurrence: US)
  Receive Date: 20150120
  Receipt Date: 20150120
  Transmission Date: 20150721
  Serious: No
  Sender: FDA-Public Use
  Company Number: US-TEVA-534978USA

PATIENT
  Age: 16 Year
  Sex: Male

DRUGS (1)
  1. CLARAVIS [Suspect]
     Active Substance: ISOTRETINOIN
     Indication: ACNE
     Dosage: DOSE AND FREQUENCY NOT PROVIDED
     Route: 065

REACTIONS (3)
  - Dry skin [Unknown]
  - Epistaxis [Unknown]
  - Erectile dysfunction [Unknown]
